FAERS Safety Report 8502366-X (Version None)
Quarter: 2012Q3

REPORT INFORMATION
  Report Type: 
  Country: None (occurrence: None)
  Receive Date: 20120711
  Receipt Date: 20120703
  Transmission Date: 20120928
  Serious: No
  Sender: FDA-Public Use
  Company Number: US-BAYER-2012-067438

PATIENT
  Sex: Female

DRUGS (2)
  1. ESTRADIOL [Concomitant]
  2. CLIMARA [Suspect]
     Dosage: 0.025 MG, UNK

REACTIONS (2)
  - METRORRHAGIA [None]
  - APPLICATION SITE REACTION [None]
